FAERS Safety Report 9198093 (Version 1)
Quarter: 2013Q1

REPORT INFORMATION
  Report Type: Spontaneous
  Country: US (occurrence: US)
  Receive Date: 20130329
  Receipt Date: 20130329
  Transmission Date: 20140127
  Serious: Yes (Death)
  Sender: FDA-Public Use
  Company Number: US-AMGEN-USASP2013020355

PATIENT
  Age: 82 Year
  Sex: Female

DRUGS (11)
  1. ENBREL [Suspect]
     Indication: PRODUCT USED FOR UNKNOWN INDICATION
     Dosage: 50 MG, QWK
     Route: 058
  2. PLAQUENIL                          /00072602/ [Concomitant]
     Dosage: 200 MG, UNK
  3. LASIX                              /00032601/ [Concomitant]
     Dosage: 20 MG, UNK
  4. EXELON                             /01383201/ [Concomitant]
     Dosage: 4.6 MG/24, UNK
  5. ALBUTEROL                          /00139501/ [Concomitant]
     Dosage: 90 MUG, UNK
  6. METOPROLOL [Concomitant]
     Dosage: 25 MG, UNK
  7. SYMBICORT [Concomitant]
     Dosage: 80-4.5
  8. OMEPRAZOLE [Concomitant]
     Dosage: 10 MG, UNK
  9. CALCIUM +D                         /00944201/ [Concomitant]
     Dosage: 500 UNK, UNK
  10. FORTEO [Concomitant]
     Dosage: UNK
  11. LIPITOR [Concomitant]
     Dosage: 10 MG, UNK

REACTIONS (1)
  - Death [Fatal]
